FAERS Safety Report 10367106 (Version 1)
Quarter: 2014Q3

REPORT INFORMATION
  Report Type: Spontaneous
  Country: ES (occurrence: ES)
  Receive Date: 20140807
  Receipt Date: 20140807
  Transmission Date: 20150326
  Serious: Yes (Hospitalization)
  Sender: FDA-Public Use
  Company Number: ES-009507513-1408ESP002452

PATIENT
  Age: 72 Year
  Sex: Female
  Weight: 53 kg

DRUGS (10)
  1. NORVASC [Concomitant]
     Active Substance: AMLODIPINE BESYLATE
     Dosage: UNK
     Dates: start: 2001
  2. PANTECTA [Concomitant]
     Active Substance: PANTOPRAZOLE SODIUM
     Dosage: UNK
     Dates: start: 200404
  3. NORVASC [Concomitant]
     Active Substance: AMLODIPINE BESYLATE
     Dosage: UNK
     Dates: start: 2004
  4. CALSYNAR [Concomitant]
     Dosage: UNK
     Route: 045
     Dates: start: 2002
  5. ADROVANCE [Suspect]
     Active Substance: ALENDRONATE SODIUM\CHOLECALCIFEROL
     Indication: OSTEOPOROSIS
     Dosage: 70 MILLIGRAM/70 MICROGRAM
     Route: 048
     Dates: start: 2009
  6. RYTMONORM [Concomitant]
     Active Substance: PROPAFENONE
     Dosage: UNK
     Dates: start: 2001
  7. STILNOX [Concomitant]
     Active Substance: ZOLPIDEM TARTRATE
     Dosage: UNK
     Dates: start: 2001
  8. COLEMIN [Concomitant]
     Dosage: UNK
     Dates: start: 200404
  9. VENORUTON (TROXERUTIN) [Concomitant]
     Dosage: UNK
     Dates: start: 2004
  10. VERISCAL D [Concomitant]
     Dosage: UNK
     Dates: start: 2001

REACTIONS (1)
  - Pathological fracture [Recovered/Resolved with Sequelae]

NARRATIVE: CASE EVENT DATE: 20100808
